FAERS Safety Report 5254844-7 (Version None)
Quarter: 2007Q1

REPORT INFORMATION
  Report Type: 
  Country: None (occurrence: None)
  Receive Date: 20070302
  Receipt Date: 20070302
  Transmission Date: 20070707
  Serious: Yes (Hospitalization)
  Sender: FDA-Public Use
  Company Number: None

PATIENT
  Age: 67 Year
  Sex: Male
  Weight: 76.7 kg

DRUGS (13)
  1. IMATINIB MESYLATE [Suspect]
     Indication: METASTATIC RENAL CELL CARCINOMA
     Dosage: 400MG PER DAY PO
     Route: 048
     Dates: start: 20061130, end: 20070215
  2. RAD001 2.5MG NOVARTIS [Suspect]
     Indication: METASTATIC RENAL CELL CARCINOMA
     Dosage: 2.5MG EVERY OTHER DAY PO
     Route: 048
     Dates: start: 20061130, end: 20070215
  3. LASIX [Concomitant]
  4. IBUPROFEN [Concomitant]
  5. CITALOPRAM HYDROBROMIDE [Concomitant]
  6. PROMETHAZINE [Concomitant]
  7. ALLOPURINOL [Concomitant]
  8. FLOMAX [Concomitant]
  9. PRILOSEC [Concomitant]
  10. OXYCODONE [Concomitant]
  11. RITALIN [Concomitant]
  12. POTASSIUM ACETATE [Concomitant]
  13. PHENERGAN HCL [Concomitant]

REACTIONS (10)
  - ABASIA [None]
  - ASTHENIA [None]
  - BRAIN OEDEMA [None]
  - BRAIN SCAN ABNORMAL [None]
  - CONDITION AGGRAVATED [None]
  - CONFUSIONAL STATE [None]
  - FALL [None]
  - HEADACHE [None]
  - MEMORY IMPAIRMENT [None]
  - METASTASES TO CENTRAL NERVOUS SYSTEM [None]
